FAERS Safety Report 9204683 (Version 1)
Quarter: 2013Q1

REPORT INFORMATION
  Report Type: Spontaneous
  Country: US (occurrence: None)
  Receive Date: 20120709
  Receipt Date: 20120709
  Transmission Date: 20140127
  Serious: Yes (Other)
  Sender: FDA-Public Use
  Company Number: PHEH2011USA03302

PATIENT
  Age: 76 Year
  Sex: Male

DRUGS (1)
  1. GLEEVEC [Suspect]
     Indication: CHRONIC MYELOID LEUKAEMIA

REACTIONS (11)
  - Leukaemia recurrent [None]
  - Pain [None]
  - Neck pain [None]
  - Oedema peripheral [None]
  - Musculoskeletal stiffness [None]
  - Myalgia [None]
  - Dysphonia [None]
  - Muscle spasms [None]
  - Nasopharyngitis [None]
  - Asthenia [None]
  - Weight decreased [None]
